FAERS Safety Report 9570991 (Version 2)
Quarter: 2013Q4

REPORT INFORMATION
  Report Type: Spontaneous
  Country: JP (occurrence: JP)
  Receive Date: 20131001
  Receipt Date: 20131001
  Transmission Date: 20140711
  Serious: Yes (Death, Other)
  Sender: FDA-Public Use
  Company Number: JP-ROCHE-1235869

PATIENT
  Age: 66 Year
  Sex: Male
  Weight: 63 kg

DRUGS (4)
  1. AVASTIN [Suspect]
     Indication: COLON CANCER METASTATIC
     Route: 041
     Dates: start: 20121102, end: 20130503
  2. AVASTIN [Suspect]
     Route: 065
     Dates: start: 20100915, end: 20110811
  3. AVASTIN [Suspect]
     Route: 065
     Dates: start: 20110824, end: 20120324
  4. XELODA [Suspect]
     Indication: COLON CANCER METASTATIC
     Dosage: 2 WEEKS ADMINISTRATION FOLLOWED BY 1 WEEK REST
     Route: 048
     Dates: start: 20121102, end: 20130503

REACTIONS (3)
  - Neoplasm malignant [Fatal]
  - Gastrointestinal perforation [Not Recovered/Not Resolved]
  - Abdominal abscess [Unknown]
